FAERS Safety Report 4305481-X (Version None)
Quarter: 2004Q1

REPORT INFORMATION
  Report Type: 
  Country: None (occurrence: None)
  Receive Date: 20040226
  Receipt Date: 20030909
  Transmission Date: 20041129
  Serious: Yes (Hospitalization)
  Sender: FDA-Public Use
  Company Number: US-BRISTOL-MYERS SQUIBB COMPANY-12388344

PATIENT
  Age: 21 Year
  Sex: Male

DRUGS (4)
  1. ABILIFY [Suspect]
     Indication: SCHIZOAFFECTIVE DISORDER
     Dosage: OVER A 10 DAY PERIOD, DOSAGE WAS INCREASED FROM 10MG TO 15MG TO 20MG
     Route: 048
     Dates: start: 20030421
  2. PROZAC [Concomitant]
  3. CLOZARIL [Concomitant]
  4. NEURONTIN [Concomitant]

REACTIONS (5)
  - AGGRESSION [None]
  - AGITATION [None]
  - HALLUCINATION, AUDITORY [None]
  - HOSTILITY [None]
  - PARANOIA [None]
